FAERS Safety Report 9803469 (Version 1)
Quarter: 2014Q1

REPORT INFORMATION
  Report Type: Spontaneous
  Country: US (occurrence: US)
  Receive Date: 20140108
  Receipt Date: 20140108
  Transmission Date: 20141002
  Serious: No
  Sender: FDA-Public Use
  Company Number: US-PFIZER INC-2014005060

PATIENT
  Sex: Female

DRUGS (3)
  1. LYRICA [Suspect]
     Indication: FIBROMYALGIA
     Dosage: 450 MG (BY TAKING 3 CAPSULES OF 150 MG AT BED TIME), 1X/DAY
     Route: 048
     Dates: start: 2012
  2. VOLTAREN [Concomitant]
     Indication: PAIN IN EXTREMITY
     Dosage: 75 MG, AS NEEDED
  3. KLONOPIN [Concomitant]
     Dosage: 1 MG OR 0.5 MG, UNK

REACTIONS (2)
  - Asthma [Not Recovered/Not Resolved]
  - Nasopharyngitis [Not Recovered/Not Resolved]
